FAERS Safety Report 9463246 (Version 1)
Quarter: 2013Q3

REPORT INFORMATION
  Report Type: Spontaneous
  Country: US (occurrence: US)
  Receive Date: 20130818
  Receipt Date: 20130818
  Transmission Date: 20140515
  Serious: No
  Sender: FDA-Public Use
  Company Number: US-009507513-1308USA005380

PATIENT
  Sex: Male

DRUGS (3)
  1. VICTRELIS [Suspect]
     Dosage: UNK
     Route: 048
     Dates: end: 20130726
  2. REBETOL [Suspect]
     Dosage: UNK
     Route: 048
     Dates: end: 20130726
  3. PEGASYS [Suspect]
     Dosage: UNK
     Dates: end: 20130726

REACTIONS (1)
  - Pruritus [Not Recovered/Not Resolved]
